FAERS Safety Report 15727746 (Version 1)
Quarter: 2018Q4

REPORT INFORMATION
  Report Type: Spontaneous
  Country: US (occurrence: US)
  Receive Date: 20181217
  Receipt Date: 20181217
  Transmission Date: 20190205
  Serious: No
  Sender: FDA-Public Use
  Company Number: US-PFIZER INC-2017111295

PATIENT
  Age: 68 Year
  Sex: Male

DRUGS (2)
  1. SOMAVERT [Suspect]
     Active Substance: PEGVISOMANT
     Dosage: 35 MG, DAILY (7 DAYS WEEKLY)
     Dates: start: 201011
  2. SOMAVERT [Suspect]
     Active Substance: PEGVISOMANT
     Dosage: 30 MG, DAILY (30 VIALS TOTAL FOR DAILY INJECTIONS ALONG WITH SUPPLIES)

REACTIONS (2)
  - Blood urea increased [Unknown]
  - Product use issue [Unknown]

NARRATIVE: CASE EVENT DATE: 201011
